FAERS Safety Report 9832516 (Version 1)
Quarter: 2014Q1

REPORT INFORMATION
  Report Type: Spontaneous
  Country: US (occurrence: US)
  Receive Date: 20140121
  Receipt Date: 20140121
  Transmission Date: 20141002
  Serious: Yes (Other)
  Sender: FDA-Public Use
  Company Number: US-PFIZER INC-2014017168

PATIENT
  Age: 77 Year
  Sex: Male
  Weight: 76.19 kg

DRUGS (3)
  1. TIKOSYN [Suspect]
     Indication: ARRHYTHMIA
     Dosage: 500 UG, UNK
  2. TIKOSYN [Suspect]
     Indication: CARDIAC FLUTTER
  3. CRESTOR [Concomitant]
     Indication: BLOOD CHOLESTEROL INCREASED
     Dosage: UNK

REACTIONS (2)
  - Renal impairment [Unknown]
  - Blood pressure abnormal [Unknown]
